FAERS Safety Report 23096933 (Version 2)
Quarter: 2023Q4

REPORT INFORMATION
  Report Type: Other
  Country: US (occurrence: US)
  Receive Date: 20231023
  Receipt Date: 20231114
  Transmission Date: 20240110
  Serious: Yes (Other)
  Sender: FDA-Public Use
  Company Number: US-UROVANT SCIENCES GMBH-202310-URV-002009

PATIENT
  Sex: Male

DRUGS (1)
  1. GEMTESA [Suspect]
     Active Substance: VIBEGRON
     Indication: Hypertonic bladder
     Dosage: 75 MG, QD
     Route: 065

REACTIONS (5)
  - Neoplasm malignant [Unknown]
  - Irritable bowel syndrome [Not Recovered/Not Resolved]
  - Drug ineffective [Unknown]
  - Pollakiuria [Unknown]
  - Adverse event [Unknown]
